FAERS Safety Report 6138354-0 (Version None)
Quarter: 2009Q1

REPORT INFORMATION
  Report Type: 
  Country: None (occurrence: None)
  Receive Date: 20090331
  Receipt Date: 20090316
  Transmission Date: 20090719
  Serious: Yes (Death, Life-Threatening)
  Sender: FDA-Public Use
  Company Number: AT-GENENTECH-271761

PATIENT
  Age: 63 Year
  Sex: Female

DRUGS (8)
  1. MABTHERA [Suspect]
     Indication: NON-HODGKIN'S LYMPHOMA
     Dosage: 100 MG, UNK
     Route: 042
     Dates: start: 20000101
  2. MABTHERA [Suspect]
     Dosage: 375 MG/M2, UNK
     Route: 042
     Dates: start: 20020601, end: 20021001
  3. MABTHERA [Suspect]
     Dosage: 375 MG/M2, UNK
     Dates: start: 20031101, end: 20031101
  4. MABTHERA [Suspect]
     Dosage: 375 MG/M2, UNK
     Dates: start: 20071201, end: 20080701
  5. ZEVALIN [Suspect]
     Indication: NON-HODGKIN'S LYMPHOMA
     Dosage: 1.6 MG, UNK
     Route: 042
     Dates: start: 20000101
  6. ZEVALIN [Suspect]
     Dosage: 1.6 MG, UNK
     Route: 042
     Dates: start: 20041104, end: 20041101
  7. YTRACIS [Suspect]
     Indication: B-CELL LYMPHOMA
     Dosage: UNK
     Route: 042
     Dates: start: 20041101, end: 20041101
  8. CHEMOTHERAPY (UNK INGREDIENTS) [Concomitant]
     Indication: NON-HODGKIN'S LYMPHOMA

REACTIONS (2)
  - PROGRESSIVE MULTIFOCAL LEUKOENCEPHALOPATHY [None]
  - VIRAL INFECTION [None]
